FAERS Safety Report 8245625-0 (Version None)
Quarter: 2012Q1

REPORT INFORMATION
  Report Type: 
  Country: None (occurrence: None)
  Receive Date: 20120330
  Receipt Date: 20120322
  Transmission Date: 20120608
  Serious: Yes (Hospitalization, Other)
  Sender: FDA-Public Use
  Company Number: US-BIOGENIDEC-2011BI043479

PATIENT
  Age: 56 Year
  Sex: Female

DRUGS (3)
  1. AVONEX [Suspect]
     Route: 030
     Dates: start: 20110801
  2. AVONEX [Suspect]
     Indication: MULTIPLE SCLEROSIS
     Route: 030
     Dates: start: 19990705
  3. AVONEX [Suspect]
     Route: 030
     Dates: start: 19990705

REACTIONS (6)
  - WEIGHT INCREASED [None]
  - OVARIAN NEOPLASM [None]
  - DIABETES MELLITUS [None]
  - BONE MARROW DISORDER [None]
  - RENAL FAILURE ACUTE [None]
  - PNEUMONIA [None]
